FAERS Safety Report 19198770 (Version 1)
Quarter: 2021Q2

REPORT INFORMATION
  Report Type: Spontaneous
  Country: FR (occurrence: FR)
  Receive Date: 20210429
  Receipt Date: 20210429
  Transmission Date: 20210717
  Serious: Yes (Hospitalization)
  Sender: FDA-Public Use
  Company Number: FR-US-PROVELL PHARMACEUTICALS LLC-9233915

PATIENT
  Age: 59 Year
  Sex: Female

DRUGS (5)
  1. DEDROGYL [Concomitant]
     Active Substance: CALCIFEDIOL
     Indication: PRODUCT USED FOR UNKNOWN INDICATION
  2. CYNOMEL [Concomitant]
     Active Substance: LIOTHYRONINE SODIUM
     Indication: PRODUCT USED FOR UNKNOWN INDICATION
     Dosage: 1/2 TABLET THE MORNING AND 1/4 TABLET AT 6.00 PM
     Dates: start: 20210114, end: 20210411
  3. LEVOTHYROX [Suspect]
     Active Substance: LEVOTHYROXINE
     Indication: AUTOIMMUNE THYROIDITIS
     Dates: end: 20210411
  4. LEVOTHYROX [Suspect]
     Active Substance: LEVOTHYROXINE
     Dosage: RESTARTED ON 14 APR 2021
     Dates: end: 20210416
  5. LEVOTHYROX [Suspect]
     Active Substance: LEVOTHYROXINE
     Dosage: RESTARTED ON 18 APR 2021

REACTIONS (18)
  - Malaise [Recovered/Resolved]
  - Fatigue [Recovering/Resolving]
  - Blood thyroid stimulating hormone abnormal [Unknown]
  - Diarrhoea [Recovering/Resolving]
  - Weight decreased [Recovering/Resolving]
  - Hunger [Recovering/Resolving]
  - Feeling cold [Recovering/Resolving]
  - Blood thyroid stimulating hormone increased [Unknown]
  - Blood pressure decreased [Unknown]
  - Dizziness [Recovering/Resolving]
  - Nausea [Recovering/Resolving]
  - Arthralgia [Unknown]
  - Tremor [Not Recovered/Not Resolved]
  - Headache [Recovering/Resolving]
  - Asthenia [Recovering/Resolving]
  - Anti-thyroid antibody positive [Unknown]
  - Thyroxine free increased [Unknown]
  - Pollakiuria [Recovering/Resolving]

NARRATIVE: CASE EVENT DATE: 20210410
